FAERS Safety Report 9842370 (Version 1)
Quarter: 2013Q4

REPORT INFORMATION
  Report Type: Spontaneous
  Country: US (occurrence: None)
  Receive Date: 20131223
  Receipt Date: 20131223
  Transmission Date: 20140711
  Serious: Yes (Other)
  Sender: FDA-Public Use
  Company Number: 219932LEO

PATIENT
  Age: 51 Year
  Sex: Female

DRUGS (6)
  1. PICATO (0.05 %, GEL) [Suspect]
     Indication: ACTINIC KERATOSIS
     Route: 061
     Dates: start: 20121211, end: 20121212
  2. SOMA(CARISOPRODOL) [Concomitant]
  3. MIRAPAX (PRAMIPEXOLE) [Concomitant]
  4. LIPITOR (ATORVASTATIN CALCIUM) [Concomitant]
  5. VASOTEC (ENALAPRIL MALEATE) [Concomitant]
  6. DURICEF (CEFADROXIL) [Concomitant]

REACTIONS (5)
  - Application site pain [None]
  - Application site erythema [None]
  - Application site reaction [None]
  - Skin tightness [None]
  - Application site vesicles [None]
